FAERS Safety Report 14913465 (Version 2)
Quarter: 2018Q3

REPORT INFORMATION
  Report Type: Spontaneous
  Country: US (occurrence: US)
  Receive Date: 20180518
  Receipt Date: 20180808
  Transmission Date: 20181010
  Serious: Yes (Hospitalization, Other)
  Sender: FDA-Public Use
  Company Number: US-PFIZER INC-2018202962

PATIENT
  Age: 81 Year
  Sex: Male
  Weight: 113.4 kg

DRUGS (2)
  1. ADVIL [Suspect]
     Active Substance: IBUPROFEN
     Indication: BACK PAIN
     Dosage: 20 MG, 1X/DAY
     Dates: start: 201806
  2. ADVIL [Suspect]
     Active Substance: IBUPROFEN
     Indication: ORAL PAIN
     Dosage: 200 MG, AS NEEDED (COATED TABLET) (USE IT SOME DAYS, SOME DAYS I DON^T, I DON^T USE IT EVERY DAY^
     Route: 048

REACTIONS (5)
  - Burn oral cavity [Recovered/Resolved]
  - Intentional product misuse [Recovered/Resolved]
  - Swelling [Recovered/Resolved]
  - Pain [Recovered/Resolved]
  - Tongue blistering [Recovered/Resolved]

NARRATIVE: CASE EVENT DATE: 201806
